FAERS Safety Report 6379237-0 (Version None)
Quarter: 2009Q3

REPORT INFORMATION
  Report Type: 
  Country: None (occurrence: None)
  Receive Date: 20090923
  Receipt Date: 20090910
  Transmission Date: 20100115
  Serious: Yes (Hospitalization)
  Sender: FDA-Public Use
  Company Number: 2008AL007981

PATIENT
  Age: 49 Year
  Sex: Male

DRUGS (39)
  1. DIGOXIN [Suspect]
     Indication: CARDIAC FAILURE CONGESTIVE
     Dosage: 0.25MG, DAILY, PO
     Route: 048
  2. DIGOXIN [Suspect]
     Dosage: 0.25MG, 1.5TAB Q3RD DAY
  3. COUMADIN [Concomitant]
  4. ENALAPRIL MALEATE [Concomitant]
  5. COREG [Concomitant]
  6. ALDACTONE [Concomitant]
  7. PROTONIX [Concomitant]
  8. LIPITOR [Concomitant]
  9. ASPIRIN [Concomitant]
  10. INSULIN [Concomitant]
  11. NOVOLOG [Concomitant]
  12. DOBUTAMINE HCL [Concomitant]
  13. HEPARIN [Concomitant]
  14. THIAMINE HCL [Concomitant]
  15. FOLATE [Concomitant]
  16. CAPOTEN [Concomitant]
  17. ALDACTONE [Concomitant]
  18. LANTUS [Concomitant]
  19. INSULIN [Concomitant]
  20. NOVOLIN INSULIN [Concomitant]
  21. PROTONIX [Concomitant]
  22. ENALAPRIL MALEATE [Concomitant]
  23. LOPRESSOR [Concomitant]
  24. LASIX [Concomitant]
  25. COUMADIN [Concomitant]
  26. DIOVAN [Concomitant]
  27. DARVOCET-N 100 [Concomitant]
  28. CHLORHEXIDINE GLUCONATE [Concomitant]
  29. METOCLOPRAMIDE [Concomitant]
  30. LORAZEPAM [Concomitant]
  31. DOCUSATE SODIUM [Concomitant]
  32. ACETAMINOPHEN [Concomitant]
  33. MORPHINE [Concomitant]
  34. DILAUDID [Concomitant]
  35. POTASSIUM CHLORIDE [Concomitant]
  36. MAGNESIUM SULFATE [Concomitant]
  37. ONDANSETRON HYDROCHLORIDE [Concomitant]
  38. OXYCODONE HCL AND ACETAMINOPHEN [Concomitant]
  39. BISACODYL [Concomitant]

REACTIONS (28)
  - ABDOMINAL PAIN UPPER [None]
  - ACUTE MYOCARDIAL INFARCTION [None]
  - APPENDIX DISORDER [None]
  - BRONCHITIS [None]
  - CARDIAC FAILURE [None]
  - CARDIAC FAILURE CONGESTIVE [None]
  - CARDIOGENIC SHOCK [None]
  - CHEST DISCOMFORT [None]
  - CHEST PAIN [None]
  - CORONARY ARTERY DISEASE [None]
  - DECREASED APPETITE [None]
  - DIZZINESS [None]
  - DYSPNOEA [None]
  - GALLBLADDER DISORDER [None]
  - GLYCOSYLATED HAEMOGLOBIN INCREASED [None]
  - HALO VISION [None]
  - HYPOTENSION [None]
  - INJURY [None]
  - MYOCARDIAL INFARCTION [None]
  - NAUSEA [None]
  - NEPHROLITHIASIS [None]
  - PALPITATIONS [None]
  - TACHYCARDIA [None]
  - TENDERNESS [None]
  - THERAPEUTIC AGENT TOXICITY [None]
  - VISION BLURRED [None]
  - VISUAL IMPAIRMENT [None]
  - VOMITING [None]
